FAERS Safety Report 5280843-5 (Version None)
Quarter: 2007Q1

REPORT INFORMATION
  Report Type: 
  Country: None (occurrence: None)
  Receive Date: 20070329
  Receipt Date: 20070320
  Transmission Date: 20070707
  Serious: Yes (Hospitalization)
  Sender: FDA-Public Use
  Company Number: GB-PFIZER INC-2007022804

PATIENT
  Age: 52 Year
  Sex: Female

DRUGS (1)
  1. HYDROCORTISONE ACETATE CREAM [Suspect]
     Indication: DERMATITIS CONTACT
     Route: 061

REACTIONS (1)
  - SKIN LACERATION [None]
